FAERS Safety Report 11846319 (Version 1)
Quarter: 2015Q4

REPORT INFORMATION
  Report Type: Spontaneous
  Country: FR (occurrence: FR)
  Receive Date: 20151217
  Receipt Date: 20151217
  Transmission Date: 20160305
  Serious: Yes (Hospitalization)
  Sender: FDA-Public Use
  Company Number: FR-009507513-1512FRA008072

PATIENT
  Age: 86 Year
  Sex: Female
  Weight: 70 kg

DRUGS (1)
  1. FOSAMAX [Suspect]
     Active Substance: ALENDRONATE SODIUM
     Indication: OSTEOPOROSIS
     Dosage: UNK
     Route: 048
     Dates: end: 20151026

REACTIONS (2)
  - Haematemesis [Recovering/Resolving]
  - Oesophagitis ulcerative [Recovering/Resolving]

NARRATIVE: CASE EVENT DATE: 20151026
